FAERS Safety Report 11602313 (Version 1)
Quarter: 2015Q4

REPORT INFORMATION
  Report Type: Spontaneous
  Country: US (occurrence: US)
  Receive Date: 20151006
  Receipt Date: 20151006
  Transmission Date: 20160304
  Serious: No
  Sender: FDA-Public Use
  Company Number: US-AMGEN-USASP2015060029

PATIENT
  Age: 72 Year
  Sex: Female

DRUGS (1)
  1. PROLIA [Suspect]
     Active Substance: DENOSUMAB
     Indication: PRODUCT USED FOR UNKNOWN INDICATION
     Dosage: UNK
     Route: 065
     Dates: start: 20150528

REACTIONS (10)
  - Abdominal pain [Unknown]
  - Arthralgia [Recovered/Resolved]
  - Flatulence [Unknown]
  - Dysuria [Unknown]
  - Anxiety [Unknown]
  - Hypertension [Unknown]
  - Groin pain [Not Recovered/Not Resolved]
  - Gait disturbance [Not Recovered/Not Resolved]
  - Pollakiuria [Unknown]
  - Hypotension [Unknown]

NARRATIVE: CASE EVENT DATE: 2015
